FAERS Safety Report 21121168 (Version 1)
Quarter: 2022Q3

REPORT INFORMATION
  Report Type: Spontaneous
  Country: CH (occurrence: CH)
  Receive Date: 20220722
  Receipt Date: 20220722
  Transmission Date: 20221027
  Serious: Yes (Disabling)
  Sender: FDA-Public Use
  Company Number: CH-SM-2022-17072

PATIENT
  Age: 63 Year
  Sex: Female
  Weight: 83 kg

DRUGS (10)
  1. PROLIA [Suspect]
     Active Substance: DENOSUMAB
     Indication: Osteoporosis
     Dosage: 60 MILLIGRAM, Q6MO
     Route: 058
     Dates: start: 201611, end: 201811
  2. APOMORPHINE HYDROCHLORIDE [Suspect]
     Active Substance: APOMORPHINE HYDROCHLORIDE
     Indication: Parkinson^s disease
     Dosage: 2 MILLIGRAM, 4.8 HOUR
     Route: 058
     Dates: start: 20191101, end: 20210701
  3. ZOLEDRONIC ACID ANHYDROUS [Suspect]
     Active Substance: ZOLEDRONIC ACID ANHYDROUS
     Indication: Osteoporosis
     Dosage: 5 MILLIGRAM, 1 YEAR
     Route: 042
     Dates: start: 201905
  4. BENSERAZIDE HYDROCHLORIDE\LEVODOPA [Concomitant]
     Active Substance: BENSERAZIDE HYDROCHLORIDE\LEVODOPA
     Dosage: 125 MILLIGRAM, Q4H
     Route: 048
  5. PK-MERZ [Concomitant]
     Active Substance: AMANTADINE
     Dosage: 100 MILLIGRAM, QD
     Route: 048
  6. INDERAL [Concomitant]
     Active Substance: PROPRANOLOL HYDROCHLORIDE
     Dosage: 10 MILLIGRAM, QD
     Route: 048
  7. SODIUM CHONDROITIN SULFATE [Concomitant]
     Active Substance: SODIUM CHONDROITIN SULFATE
     Dosage: 800 MILLIGRAM, QD
     Route: 048
  8. ESCITALOPRAM OXALATE [Concomitant]
     Active Substance: ESCITALOPRAM OXALATE
     Dosage: 20 MILLIGRAM, QD
     Route: 048
  9. CALCIUM CARBONATE\CHOLECALCIFEROL [Concomitant]
     Active Substance: CALCIUM CARBONATE\CHOLECALCIFEROL
     Dosage: 1 DOSAGE FORM, QD
     Route: 048
  10. PANTOPRAZOLE SODIUM [Concomitant]
     Active Substance: PANTOPRAZOLE SODIUM
     Dosage: 40 MILLIGRAM, QD
     Route: 048

REACTIONS (2)
  - Tooth disorder [Recovering/Resolving]
  - Tooth loss [Recovering/Resolving]

NARRATIVE: CASE EVENT DATE: 20191201
